FAERS Safety Report 7680534-7 (Version None)
Quarter: 2011Q3

REPORT INFORMATION
  Report Type: 
  Country: None (occurrence: None)
  Receive Date: 20110812
  Receipt Date: 20110811
  Transmission Date: 20111222
  Serious: Yes (Other)
  Sender: FDA-Public Use
  Company Number: JP-PFIZER INC-2011185152

PATIENT
  Sex: Female

DRUGS (1)
  1. LYRICA [Suspect]
     Indication: PAIN
     Dosage: 300 MG DAILY
     Route: 048

REACTIONS (4)
  - VISION BLURRED [None]
  - VISUAL ACUITY REDUCED [None]
  - EYE PAIN [None]
  - HYPERAEMIA [None]
